FAERS Safety Report 15549095 (Version 2)
Quarter: 2018Q4

REPORT INFORMATION
  Report Type: Spontaneous
  Country: NL (occurrence: NL)
  Receive Date: 20181025
  Receipt Date: 20181116
  Transmission Date: 20190205
  Serious: Yes (Other)
  Sender: FDA-Public Use
  Company Number: NL-TEVA-2018-NL-968067

PATIENT
  Age: 50 Year
  Sex: Male

DRUGS (7)
  1. COLECALCIFEROL CAPSULE 25000IE [Concomitant]
     Route: 065
     Dates: start: 20180820
  2. ALFACALCIDOL CAPSULE 0,25 UG [Concomitant]
     Dosage: 1 X DAILY 1-2 CAPSULES
     Route: 065
     Dates: start: 20130610
  3. TAMSULOSINE CAPSULE MGA 0,4 MG [Concomitant]
     Route: 065
     Dates: start: 20171018
  4. LOSARTAN TABLET FO 50 MG [Concomitant]
     Dosage: 50 MILLIGRAM DAILY;  MORNING
     Route: 065
     Dates: start: 20130802
  5. LOSARTAN(KALIUMLOSARTAN SANDOZ) TABLET FO 25 MG [Concomitant]
     Dosage: 25 MILLIGRAM DAILY; 1XDAAGS 1 TABLET
     Route: 065
     Dates: start: 20171204
  6. COLECALCIFEROL DRANK 25.000 IE/ML [Concomitant]
     Dosage: 1 X/2WEKEN 2 VIALS OF 1 ML
     Route: 065
     Dates: start: 20171018
  7. PRAVASTATINE TABLET, 40 MG (MILLIGRAM) [Suspect]
     Active Substance: PRAVASTATIN SODIUM
     Indication: CARDIOVASCULAR EVENT PROPHYLAXIS
     Dosage: 40 MILLIGRAM DAILY; 1 PIECE
     Route: 065
     Dates: start: 20180806, end: 20180817

REACTIONS (2)
  - Loss of consciousness [Recovered/Resolved]
  - Myalgia [Unknown]

NARRATIVE: CASE EVENT DATE: 20180813
